FAERS Safety Report 10151612 (Version 2)
Quarter: 2014Q2

REPORT INFORMATION
  Report Type: Spontaneous
  Country: US (occurrence: US)
  Receive Date: 20140505
  Receipt Date: 20140505
  Transmission Date: 20141212
  Serious: Yes (Hospitalization, Other)
  Sender: FDA-Public Use
  Company Number: US-AMGEN-USASP2014026998

PATIENT
  Sex: Female

DRUGS (2)
  1. ENBREL [Suspect]
     Indication: PRODUCT USED FOR UNKNOWN INDICATION
     Dosage: UNK, UNK, INJECTION EVERY THREE WEEKS
     Route: 065
  2. XELJANZ [Suspect]

REACTIONS (5)
  - Dehydration [Unknown]
  - Malaise [Unknown]
  - Influenza like illness [Unknown]
  - Influenza [Unknown]
  - Nasopharyngitis [Unknown]
